FAERS Safety Report 10997500 (Version 1)
Quarter: 2015Q2

REPORT INFORMATION
  Report Type: Spontaneous
  Country: FR (occurrence: FR)
  Receive Date: 20150408
  Receipt Date: 20150408
  Transmission Date: 20150821
  Serious: Yes (Other)
  Sender: FDA-Public Use
  Company Number: FR-ASTRAZENECA-2015SE31079

PATIENT
  Age: 32 Year
  Sex: Male

DRUGS (13)
  1. TAHOR [Concomitant]
     Active Substance: ATORVASTATIN CALCIUM
  2. LOVENOX [Concomitant]
     Active Substance: ENOXAPARIN SODIUM
  3. MOVICOL [Concomitant]
     Active Substance: POLYETHYLENE GLYCOL 3350\POTASSIUM CHLORIDE\SODIUM BICARBONATE\SODIUM CHLORIDE
  4. SEROPRAM [Concomitant]
     Active Substance: CITALOPRAM HYDROBROMIDE
  5. INEXIUM [Suspect]
     Active Substance: ESOMEPRAZOLE
     Route: 048
  6. TEGRETOL [Suspect]
     Active Substance: CARBAMAZEPINE
     Route: 048
     Dates: start: 201405
  7. PLAVIX [Concomitant]
     Active Substance: CLOPIDOGREL BISULFATE
  8. TRIATEC [Concomitant]
     Active Substance: RAMIPRIL
  9. INSPRA [Concomitant]
     Active Substance: EPLERENONE
  10. TEGRETOL [Suspect]
     Active Substance: CARBAMAZEPINE
     Route: 048
  11. KEPPRA [Concomitant]
     Active Substance: LEVETIRACETAM
  12. VIMPAT [Concomitant]
     Active Substance: LACOSAMIDE
  13. COUMADINE [Concomitant]
     Active Substance: WARFARIN SODIUM

REACTIONS (1)
  - Inappropriate antidiuretic hormone secretion [Not Recovered/Not Resolved]

NARRATIVE: CASE EVENT DATE: 2014
